FAERS Safety Report 20916570 (Version 1)
Quarter: 2022Q2

REPORT INFORMATION
  Report Type: Spontaneous
  Country: JP (occurrence: JP)
  Receive Date: 20220605
  Receipt Date: 20220605
  Transmission Date: 20220720
  Serious: Yes (Hospitalization)
  Sender: FDA-Public Use
  Company Number: JP-CHUGAI-2022018322

PATIENT
  Age: 70 Year
  Sex: Male

DRUGS (5)
  1. ACTEMRA [Suspect]
     Active Substance: TOCILIZUMAB
     Indication: COVID-19 pneumonia
     Dosage: 560 MILLIGRAM, QD
     Route: 041
     Dates: start: 20220413, end: 20220413
  2. DEXAMETHASONE SODIUM PHOSPHATE [Concomitant]
     Active Substance: DEXAMETHASONE SODIUM PHOSPHATE
     Indication: COVID-19
     Dosage: ONCE/6DAYS
     Route: 041
     Dates: start: 20220412, end: 20220417
  3. AMPICILLIN SODIUM\SULBACTAM SODIUM [Concomitant]
     Active Substance: AMPICILLIN SODIUM\SULBACTAM SODIUM
     Indication: COVID-19
     Dosage: UNK, ONCE/2DAY
     Route: 041
     Dates: start: 20220412, end: 20220417
  4. VEKLURY [Concomitant]
     Active Substance: REMDESIVIR
     Indication: COVID-19
     Dosage: UNK, QD
     Route: 041
     Dates: start: 20220412, end: 20220421
  5. OLUMIANT [Concomitant]
     Active Substance: BARICITINIB
     Indication: COVID-19
     Dosage: UNK, QD
     Route: 048
     Dates: start: 20220410, end: 20220422

REACTIONS (1)
  - Platelet count decreased [Recovered/Resolved]

NARRATIVE: CASE EVENT DATE: 20220425
